FAERS Safety Report 17091072 (Version 2)
Quarter: 2019Q4

REPORT INFORMATION
  Report Type: Spontaneous
  Country: CO (occurrence: CO)
  Receive Date: 20191129
  Receipt Date: 20191209
  Transmission Date: 20200122
  Serious: Yes (Other)
  Sender: FDA-Public Use
  Company Number: CO-UNITED THERAPEUTICS-UNT-2019-019579

PATIENT

DRUGS (12)
  1. BOSENTAN. [Concomitant]
     Active Substance: BOSENTAN
     Indication: PULMONARY HYPERTENSION
     Dosage: 125 MG, Q12H
     Route: 048
     Dates: start: 201710
  2. FUROSEMIDA [Concomitant]
     Active Substance: FUROSEMIDE
     Indication: CARDIOMYOPATHY
     Dosage: 5 MG, Q12H
     Route: 048
     Dates: start: 201710
  3. ESOMEPRAZOL [Suspect]
     Active Substance: ESOMEPRAZOLE
     Indication: THERAPEUTIC PROCEDURE
     Dosage: 2 DF, QD (2 CAPSULES EVERY 24 HOURS)
     Route: 048
     Dates: start: 201710
  4. SPIRONOLACTONE. [Concomitant]
     Active Substance: SPIRONOLACTONE
     Indication: CARDIOMYOPATHY
     Dosage: 25 MG, Q12H
     Route: 048
     Dates: start: 201710
  5. REMODULIN [Suspect]
     Active Substance: TREPROSTINIL
     Indication: PULMONARY ARTERIAL HYPERTENSION
     Dosage: 0.038 ?G/KG, CONTINUING; AT RATE OF 0.22 CC/H
     Route: 058
     Dates: start: 20171011
  6. SILDENAFIL. [Concomitant]
     Active Substance: SILDENAFIL
     Indication: PULMONARY HYPERTENSION
     Dosage: 50 MG, Q8H
     Route: 048
     Dates: start: 201710
  7. LOVASTATINA [Concomitant]
     Active Substance: LOVASTATIN
     Indication: CARDIOMYOPATHY
     Dosage: 20 MG, QD (EVERY 24 HOURS)
     Route: 048
     Dates: start: 201710
  8. TRAZODONE [Concomitant]
     Active Substance: TRAZODONE HYDROCHLORIDE
     Indication: ANTIDEPRESSANT THERAPY
     Dosage: 50 MG, QD (EVERY 24 HOURS)
     Route: 048
     Dates: start: 201710
  9. LOPERAMIDE [Concomitant]
     Active Substance: LOPERAMIDE
     Indication: ANTIDIARRHOEAL SUPPORTIVE CARE
     Dosage: 2 MG, QD (EVERY 24 HOURS)
     Route: 048
     Dates: start: 201710
  10. ENOXAPARIN [Concomitant]
     Active Substance: ENOXAPARIN
     Indication: ANTICOAGULANT THERAPY
     Dosage: 60 MG, Q12H
     Route: 058
     Dates: start: 201710
  11. LOSARTAN. [Concomitant]
     Active Substance: LOSARTAN
     Indication: PULMONARY HYPERTENSION
     Dosage: 25 MG, QD (EVERY 24 HOURS)
     Route: 048
     Dates: start: 201710
  12. ACETAMINOPHEN;HYDROCODONE [Concomitant]
     Active Substance: ACETAMINOPHEN\HYDROCODONE
     Indication: ANALGESIC THERAPY
     Dosage: (7.5-325 MG), Q8H
     Route: 048
     Dates: start: 201710

REACTIONS (4)
  - Catheter site pain [Recovered/Resolved]
  - Hypokalaemia [Recovered/Resolved]
  - Nausea [Recovered/Resolved]
  - Vomiting [Recovered/Resolved]

NARRATIVE: CASE EVENT DATE: 20191118
